FAERS Safety Report 18711027 (Version 1)
Quarter: 2021Q1

REPORT INFORMATION
  Report Type: Spontaneous
  Country: US (occurrence: US)
  Receive Date: 20210106
  Receipt Date: 20210106
  Transmission Date: 20210419
  Serious: No
  Sender: FDA-Public Use
  Company Number: None

PATIENT
  Age: 64 Year
  Sex: Female
  Weight: 95.85 kg

DRUGS (1)
  1. REMDESIVIR. [Suspect]
     Active Substance: REMDESIVIR
     Indication: COVID-19

REACTIONS (4)
  - Pain in extremity [None]
  - Infusion related reaction [None]
  - Skin tightness [None]
  - Peripheral swelling [None]

NARRATIVE: CASE EVENT DATE: 20210106
